FAERS Safety Report 13990155 (Version 1)
Quarter: 2017Q3

REPORT INFORMATION
  Report Type: Spontaneous
  Country: US (occurrence: US)
  Receive Date: 20170920
  Receipt Date: 20170920
  Transmission Date: 20171128
  Serious: Yes (Hospitalization)
  Sender: FDA-Public Use
  Company Number: None

PATIENT
  Age: 58 Year
  Sex: Female
  Weight: 78.75 kg

DRUGS (8)
  1. MELETONIN [Concomitant]
  2. BACLOFEN. [Concomitant]
     Active Substance: BACLOFEN
  3. TYLENOL ARTHRITIS PAIN [Concomitant]
     Active Substance: ACETAMINOPHEN
  4. VIT. D [Concomitant]
  5. VIT. B [Concomitant]
  6. CRESTOR [Concomitant]
     Active Substance: ROSUVASTATIN CALCIUM
  7. RECLAST [Suspect]
     Active Substance: ZOLEDRONIC ACID
     Indication: OSTEOPOROSIS PROPHYLAXIS
     Dosage: IV; YEARLY
     Route: 042
     Dates: start: 20170410
  8. TRAMADOL. [Concomitant]
     Active Substance: TRAMADOL

REACTIONS (12)
  - Dyspnoea [None]
  - Feeling of despair [None]
  - Tooth disorder [None]
  - Vomiting projectile [None]
  - Musculoskeletal pain [None]
  - Gait inability [None]
  - Chest pain [None]
  - Myalgia [None]
  - Drug ineffective [None]
  - Middle insomnia [None]
  - Back pain [None]
  - Muscle spasms [None]

NARRATIVE: CASE EVENT DATE: 20170411
